FAERS Safety Report 14753516 (Version 1)
Quarter: 2018Q2

REPORT INFORMATION
  Report Type: Report from Study
  Country: FR (occurrence: FR)
  Receive Date: 20180412
  Receipt Date: 20180412
  Transmission Date: 20180711
  Serious: Yes (Hospitalization, Other)
  Sender: FDA-Public Use
  Company Number: FR-ROCHE-1631647

PATIENT
  Age: 54 Year
  Sex: Male
  Weight: 75 kg

DRUGS (1)
  1. RITUXIMAB. [Suspect]
     Active Substance: RITUXIMAB
     Indication: IMMUNE THROMBOCYTOPENIC PURPURA
     Dosage: ON 24/JUN/2011, RECEIVED LAST DOSE PRIOR TO SAE
     Route: 041
     Dates: start: 20110603

REACTIONS (3)
  - Rotator cuff repair [Recovered/Resolved]
  - Postoperative thrombosis [Recovered/Resolved]
  - Prostate cancer [Unknown]

NARRATIVE: CASE EVENT DATE: 20111123
